FAERS Safety Report 8867883 (Version 1)
Quarter: 2012Q4

REPORT INFORMATION
  Report Type: 
  Country: US (occurrence: US)
  Receive Date: 20121025
  Receipt Date: 20121025
  Transmission Date: 20130627
  Serious: No
  Sender: FDA-Public Use
  Company Number: US-AMGEN-USASP2012018786

PATIENT
  Age: 60 Year
  Sex: Female
  Weight: 82.99 kg

DRUGS (9)
  1. ENBREL [Suspect]
     Dosage: 50 mg, 2 times/wk
     Route: 058
  2. METHOTREXATE [Concomitant]
     Dosage: 2.5 mg, UNK
  3. LASIX                              /00032601/ [Concomitant]
     Dosage: 20 mg, UNK
  4. VITAMIN D3 [Concomitant]
     Dosage: UNK
  5. VITAMIN C                          /00008001/ [Concomitant]
     Dosage: 500 mg, UNK
  6. CALCIUM [Concomitant]
  7. LYSINE [Concomitant]
     Dosage: 500 mg, UNK
  8. FISH OIL [Concomitant]
     Dosage: UNK
  9. ASPIRIN (E.C.) [Concomitant]
     Dosage: 81 mg, UNK

REACTIONS (2)
  - Gingival pain [Unknown]
  - Injection site pain [Unknown]
